FAERS Safety Report 11692420 (Version 1)
Quarter: 2015Q4

REPORT INFORMATION
  Report Type: Spontaneous
  Country: JP (occurrence: JP)
  Receive Date: 20151103
  Receipt Date: 20151103
  Transmission Date: 20160304
  Serious: Yes (Hospitalization, Other)
  Sender: FDA-Public Use
  Company Number: JP-CIPLA LTD.-2015JP08223

PATIENT

DRUGS (8)
  1. CARBOPLATIN. [Suspect]
     Active Substance: CARBOPLATIN
     Indication: ENDOMETRIAL STROMAL SARCOMA
     Dosage: UNK
     Route: 065
  2. GEMCITABINE [Suspect]
     Active Substance: GEMCITABINE\GEMCITABINE HYDROCHLORIDE
     Indication: ENDOMETRIAL STROMAL SARCOMA
     Dosage: 800MG/BODY SURFACE AREA, DAY 1 AND 8
     Route: 065
  3. MEDROXYPROGESTERONE ACETATE. [Suspect]
     Active Substance: MEDROXYPROGESTERONE ACETATE
     Dosage: 600 MG, DAILY
     Route: 065
  4. LEUPRORELIN ACETATE [Suspect]
     Active Substance: LEUPROLIDE ACETATE
     Indication: PLEURAL EFFUSION
     Dosage: 3.75 MG/BODY SURFACE AREA ONCE EVERY 28 DAYS
     Route: 065
  5. CARBOPLATIN. [Suspect]
     Active Substance: CARBOPLATIN
     Dosage: AREA UNDER THE CURVE =4
     Route: 065
  6. DOCETAXEL. [Suspect]
     Active Substance: DOCETAXEL
     Indication: ENDOMETRIAL STROMAL SARCOMA
     Dosage: 60MG/BODY SURFACE AREA, DAY 8
     Route: 065
  7. ANASTROZOLE. [Suspect]
     Active Substance: ANASTROZOLE
     Indication: ASCITES
     Dosage: 1MG/DAY
     Route: 065
  8. PACLITAXEL. [Suspect]
     Active Substance: PACLITAXEL
     Indication: ENDOMETRIAL STROMAL SARCOMA
     Dosage: 170 MG/M2, UNK
     Route: 065

REACTIONS (10)
  - Neutropenia [Unknown]
  - Ascites [Recovering/Resolving]
  - Shock [Unknown]
  - Pleural effusion [Recovering/Resolving]
  - Intra-abdominal haemorrhage [Unknown]
  - Dyspnoea [Unknown]
  - Ileus [Unknown]
  - Disease progression [Unknown]
  - Disease recurrence [Unknown]
  - Thoracic haemorrhage [Unknown]
